FAERS Safety Report 8235892 (Version 2)
Quarter: 2012Q4

REPORT INFORMATION
  Report Type: Report from Study
  Country: JP (occurrence: JP)
  Receive Date: 20111108
  Receipt Date: 20121031
  Transmission Date: 20130627
  Serious: Yes (Death, Hospitalization, Other)
  Sender: FDA-Public Use
  Company Number: JP-GENZYME-THYM-1002876

PATIENT
  Age: 58 Year
  Sex: Female
  Weight: 61 kg

DRUGS (15)
  1. THYMOGLOBULIN [Suspect]
     Indication: BONE MARROW CONDITIONING REGIMEN
     Dosage: 125 mg, qd
     Route: 042
     Dates: start: 20090518, end: 20090520
  2. TACROLIMUS [Concomitant]
     Indication: IMMUNOSUPPRESSION
     Dosage: UNK
     Route: 065
     Dates: start: 20090520, end: 20090908
  3. CYTARABINE [Concomitant]
     Indication: IMMUNOSUPPRESSION
     Dosage: UNK
     Route: 065
     Dates: start: 20090508, end: 20090508
  4. DEXAMETHASONE SODIUM PHOSPHATE [Concomitant]
     Indication: IMMUNOSUPPRESSION
     Dosage: UNK
     Route: 065
     Dates: start: 20090508, end: 20090508
  5. FLUDARABINE PHOSPHATE [Concomitant]
     Indication: IMMUNOSUPPRESSION
     Dosage: UNK
     Route: 065
     Dates: start: 20090514, end: 20090518
  6. MELPHALAN [Concomitant]
     Indication: IMMUNOSUPPRESSION
     Dosage: UNK
     Route: 065
     Dates: start: 20090517, end: 20090518
  7. METHYLPREDNISOLONE SODIUM SUCCINATE [Concomitant]
     Indication: IMMUNOSUPPRESSION
     Dosage: UNK
     Route: 065
     Dates: start: 20090518, end: 20090522
  8. PREDNISOLONE [Concomitant]
     Indication: IMMUNOSUPPRESSION
     Dosage: UNK
     Route: 065
     Dates: start: 20090924, end: 20091205
  9. ACICLOVIR [Concomitant]
     Indication: INFECTION PROPHYLAXIS
     Dosage: UNK
     Route: 065
     Dates: start: 20090501, end: 20090713
  10. ACICLOVIR [Concomitant]
     Dosage: UNK
     Route: 065
     Dates: start: 20091103, end: 20091215
  11. FLUCONAZOLE [Concomitant]
     Indication: INFECTION PROPHYLAXIS
     Dosage: UNK
     Route: 065
     Dates: start: 20090512, end: 20090522
  12. SULFAMETHOPRIM [Concomitant]
     Indication: INFECTION PROPHYLAXIS
     Dosage: UNK
     Route: 065
     Dates: start: 20090608, end: 20091215
  13. METHOTREXATE [Concomitant]
     Indication: IMMUNOSUPPRESSION
     Dosage: UNK
     Route: 065
     Dates: start: 20090522, end: 20090522
  14. METHOTREXATE [Concomitant]
     Dosage: UNK
     Route: 065
     Dates: start: 20090524, end: 20090524
  15. METHOTREXATE [Concomitant]
     Dosage: UNK
     Route: 065
     Dates: start: 20090527, end: 20090527

REACTIONS (5)
  - Acute graft versus host disease in skin [Recovered/Resolved]
  - Post transplant lymphoproliferative disorder [Recovered/Resolved]
  - Bronchopulmonary aspergillosis [Fatal]
  - Pneumonia staphylococcal [Recovered/Resolved]
  - Cytomegalovirus infection [Recovered/Resolved]
